FAERS Safety Report 4667269-X (Version None)
Quarter: 2005Q2

REPORT INFORMATION
  Report Type: 
  Country: None (occurrence: None)
  Receive Date: 20050421
  Receipt Date: 20050125
  Transmission Date: 20051028
  Serious: No
  Sender: FDA-Public Use
  Company Number: 2005030907

PATIENT
  Sex: 0

DRUGS (1)
  1. INSPRA [Suspect]
     Indication: ILL-DEFINED DISORDER

REACTIONS (1)
  - GOUT [None]
